FAERS Safety Report 17468559 (Version 1)
Quarter: 2020Q1

REPORT INFORMATION
  Report Type: Spontaneous
  Country: US (occurrence: US)
  Receive Date: 20200227
  Receipt Date: 20200227
  Transmission Date: 20200409
  Serious: No
  Sender: FDA-Public Use
  Company Number: US-ASTRAZENECA-2020SE17783

PATIENT
  Age: 19878 Day
  Sex: Female
  Weight: 67.6 kg

DRUGS (4)
  1. ELIQUIS [Concomitant]
     Active Substance: APIXABAN
  2. ARMOUR THYROID [Concomitant]
     Active Substance: THYROID, PORCINE
  3. WELLBUTRIN [Concomitant]
     Active Substance: BUPROPION HYDROCHLORIDE
  4. FASLODEX [Suspect]
     Active Substance: FULVESTRANT
     Indication: BREAST CANCER METASTATIC
     Route: 030
     Dates: start: 20200122

REACTIONS (5)
  - Hypoaesthesia [Unknown]
  - Skin disorder [Recovered/Resolved]
  - Hypoaesthesia [Recovered/Resolved]
  - Foreign body sensation in eyes [Recovered/Resolved]
  - Periorbital swelling [Recovered/Resolved]

NARRATIVE: CASE EVENT DATE: 20200122
